FAERS Safety Report 22318233 (Version 3)
Quarter: 2023Q2

REPORT INFORMATION
  Report Type: Report from Study
  Country: ZA (occurrence: ZA)
  Receive Date: 20230515
  Receipt Date: 20230606
  Transmission Date: 20230721
  Serious: Yes (Death, Hospitalization, Other)
  Sender: FDA-Public Use
  Company Number: ZA-CELLTRION INC.-2022ZA020000

PATIENT

DRUGS (15)
  1. INFLIXIMAB [Suspect]
     Active Substance: INFLIXIMAB
     Indication: Crohn^s disease
     Dosage: 400MG AT 0 WEEKS, 2 WEEKS, 6 WEEKS AND 8 WEEKLY INTERVALS
     Route: 042
     Dates: start: 20210916
  2. INFLIXIMAB [Suspect]
     Active Substance: INFLIXIMAB
     Dosage: 400 MILLIGRAM, 8 WEEKLY
     Route: 042
     Dates: start: 20210917
  3. INFLIXIMAB [Suspect]
     Active Substance: INFLIXIMAB
     Dosage: 400 MILLIGRAM, 8 WEEKLY
     Route: 042
     Dates: start: 20210930
  4. INFLIXIMAB [Suspect]
     Active Substance: INFLIXIMAB
     Dosage: 400 MILLIGRAM, 8 WEEKLY
     Route: 042
     Dates: start: 20211028
  5. INFLIXIMAB [Suspect]
     Active Substance: INFLIXIMAB
     Dosage: 400 MILLIGRAM, 8 WEEKLY
     Route: 042
     Dates: start: 20211223
  6. INFLIXIMAB [Suspect]
     Active Substance: INFLIXIMAB
     Dosage: 400 MILLIGRAM, 8 WEEKLY
     Route: 042
     Dates: start: 20220217
  7. INFLIXIMAB [Suspect]
     Active Substance: INFLIXIMAB
     Dosage: 400 MILLIGRAM, 8 WEEKLY
     Route: 042
     Dates: start: 20220414
  8. INFLIXIMAB [Suspect]
     Active Substance: INFLIXIMAB
     Dosage: 400 MILLIGRAM, 8 WEEKLY
     Route: 042
     Dates: start: 20220609
  9. INFLIXIMAB [Suspect]
     Active Substance: INFLIXIMAB
     Dosage: 400 MILLIGRAM, 8 WEEKLY
     Route: 042
     Dates: start: 20220805
  10. INFLIXIMAB [Suspect]
     Active Substance: INFLIXIMAB
     Dosage: 400 MILLIGRAM, 8 WEEKLY
     Route: 042
     Dates: start: 20221003
  11. INFLIXIMAB [Suspect]
     Active Substance: INFLIXIMAB
     Dosage: 400 MILLIGRAM, 8 WEEKLY
     Route: 042
     Dates: start: 20221121
  12. INFLIXIMAB [Suspect]
     Active Substance: INFLIXIMAB
     Dosage: 400 MILLIGRAM, 8 WEEKLY
     Route: 042
     Dates: start: 20230202
  13. INFLIXIMAB [Suspect]
     Active Substance: INFLIXIMAB
     Dosage: 400 MILLIGRAM, 8 WEEKLY
     Route: 042
     Dates: start: 20230330
  14. AZATHIOPRINE [Concomitant]
     Active Substance: AZATHIOPRINE
     Dosage: 200 MG
  15. ASACOL [Concomitant]
     Active Substance: MESALAMINE
     Dosage: UNK

REACTIONS (14)
  - Death [Fatal]
  - Lymphadenitis [Unknown]
  - Blood urine present [Unknown]
  - Discomfort [Unknown]
  - Abscess [Unknown]
  - Pain [Unknown]
  - Pyrexia [Unknown]
  - Tuberculosis gastrointestinal [Unknown]
  - Illness [Not Recovered/Not Resolved]
  - Malaise [Not Recovered/Not Resolved]
  - Treatment delayed [Unknown]
  - Therapeutic product effect decreased [Not Recovered/Not Resolved]
  - Overdose [Unknown]
  - Intentional product use issue [Unknown]

NARRATIVE: CASE EVENT DATE: 20221107
